FAERS Safety Report 6096966-7 (Version None)
Quarter: 2009Q1

REPORT INFORMATION
  Report Type: 
  Country: None (occurrence: None)
  Receive Date: 20090227
  Receipt Date: 20090216
  Transmission Date: 20090719
  Serious: Yes (Life-Threatening)
  Sender: FDA-Public Use
  Company Number: JP-PFIZER INC-2009167886

PATIENT

DRUGS (5)
  1. GABAPEN [Suspect]
     Indication: EPILEPSY
     Dosage: UNK
     Route: 048
     Dates: start: 20070404
  2. DRUG, UNSPECIFIED [Concomitant]
  3. DEPAKENE [Concomitant]
     Route: 048
  4. EXCEGRAN [Concomitant]
     Route: 048
  5. PARIET [Concomitant]
     Route: 048

REACTIONS (1)
  - MULTIPLE MYELOMA [None]
